FAERS Safety Report 7504629-3 (Version None)
Quarter: 2011Q2

REPORT INFORMATION
  Report Type: 
  Country: None (occurrence: None)
  Receive Date: 20110525
  Receipt Date: 20110320
  Transmission Date: 20111010
  Serious: No
  Sender: FDA-Public Use
  Company Number: US-AMGEN-USASP2011014461

PATIENT
  Age: 44 Year
  Sex: Female
  Weight: 61.224 kg

DRUGS (1)
  1. NPLATE [Suspect]
     Indication: IDIOPATHIC THROMBOCYTOPENIC PURPURA
     Dosage: 250 A?G, QWK
     Route: 058
     Dates: start: 20100927

REACTIONS (1)
  - RASH PRURITIC [None]
